FAERS Safety Report 18207056 (Version 1)
Quarter: 2020Q3

REPORT INFORMATION
  Report Type: Spontaneous
  Country: US (occurrence: US)
  Receive Date: 20200828
  Receipt Date: 20200828
  Transmission Date: 20201103
  Serious: No
  Sender: FDA-Public Use
  Company Number: US-3M-2020-US-014617

PATIENT
  Age: 73 Year
  Sex: Female
  Weight: 53.52 kg

DRUGS (2)
  1. PERIDEX [Suspect]
     Active Substance: CHLORHEXIDINE GLUCONATE
     Indication: TOOTH EXTRACTION
     Dosage: RINSE MOUTH TWICE A DAY / DIP A COTTON SWAB IN THE PRODUCT AND APPLY IT TO THE AREA HER TOOTH HAD BE
     Route: 048
     Dates: start: 20200626
  2. VANCOMYCIN [Concomitant]
     Active Substance: VANCOMYCIN
     Route: 065

REACTIONS (4)
  - Off label use [Unknown]
  - Tongue disorder [Not Recovered/Not Resolved]
  - Glossodynia [Not Recovered/Not Resolved]
  - Oropharyngeal pain [Not Recovered/Not Resolved]

NARRATIVE: CASE EVENT DATE: 20200630
